FAERS Safety Report 8295082-3 (Version None)
Quarter: 2012Q2

REPORT INFORMATION
  Report Type: 
  Country: None (occurrence: None)
  Receive Date: 20120418
  Receipt Date: 20120416
  Transmission Date: 20120825
  Serious: No
  Sender: FDA-Public Use
  Company Number: US-PFIZER INC-2012094356

PATIENT
  Sex: Female
  Weight: 66.213 kg

DRUGS (6)
  1. CELEBREX [Suspect]
     Indication: BACK PAIN
  2. ACETYLSALICYLIC ACID [Concomitant]
     Indication: ISCHAEMIC HEART DISEASE PROPHYLAXIS
  3. MULTI-VITAMINS [Concomitant]
     Dosage: UNK, DAILY
  4. ACETYLSALICYLIC ACID [Concomitant]
     Indication: CEREBROVASCULAR ACCIDENT
     Dosage: 81 MG, DAILY
  5. CELEBREX [Suspect]
     Indication: ARTHRALGIA
     Dosage: 200 MG, DAILY
     Dates: start: 20120401
  6. TURMERIC [Concomitant]
     Indication: INFLAMMATION
     Dosage: UNK, DAILY

REACTIONS (2)
  - PHOTOSENSITIVITY REACTION [None]
  - SUNBURN [None]
